FAERS Safety Report 10616867 (Version 2)
Quarter: 2014Q4

REPORT INFORMATION
  Report Type: Spontaneous
  Country: NL (occurrence: NL)
  Receive Date: 20141201
  Receipt Date: 20141207
  Transmission Date: 20150529
  Serious: Yes (Hospitalization)
  Sender: FDA-Public Use
  Company Number: NL-TEVA-523364ISR

PATIENT
  Age: 74 Year
  Sex: Male

DRUGS (3)
  1. ALFUZOSINE TABLET MGA 10MG [Concomitant]
     Dosage: 10 MILLIGRAM DAILY; ONCE DAILY ONE PIECE
     Route: 048
  2. ACENOCOUMAROL TABLET 1MG [Concomitant]
     Active Substance: ACENOCOUMAROL
     Dosage: EXTRA INFO: ACCORDING TO THROMBOSIS SERVICE
     Route: 048
  3. HYDROCHLOORTHIAZIDE TABLET 25MG [Suspect]
     Active Substance: HYDROCHLOROTHIAZIDE
     Indication: HYPERTENSION
     Dosage: 25 MILLIGRAM DAILY; ONCE DAILY ONE PIECE
     Route: 048
     Dates: start: 1950, end: 20140908

REACTIONS (1)
  - Hepatic enzyme increased [Recovered/Resolved]

NARRATIVE: CASE EVENT DATE: 20140807
